FAERS Safety Report 8340334-1 (Version None)
Quarter: 2012Q2

REPORT INFORMATION
  Report Type: 
  Country: None (occurrence: None)
  Receive Date: 20120507
  Receipt Date: 20120501
  Transmission Date: 20120825
  Serious: Yes (Death, Life-Threatening, Hospitalization)
  Sender: FDA-Public Use
  Company Number: JP-ASTRAZENECA-2011SE20864

PATIENT
  Age: 25663 Day
  Sex: Male

DRUGS (13)
  1. TRICHLORMETHIAZIDE [Concomitant]
     Indication: CARDIAC FAILURE ACUTE
     Route: 048
     Dates: start: 20110406, end: 20110411
  2. CRESTOR [Concomitant]
     Indication: DYSLIPIDAEMIA
     Route: 048
     Dates: start: 20110406, end: 20110411
  3. HANP [Concomitant]
     Indication: CARDIAC FAILURE ACUTE
     Route: 042
     Dates: start: 20110406, end: 20110406
  4. ASPIRIN [Suspect]
     Indication: ACUTE CORONARY SYNDROME
     Route: 048
     Dates: start: 20110406, end: 20110411
  5. PLACEBO [Suspect]
     Indication: ACUTE CORONARY SYNDROME
     Dosage: ONCE DAILY
     Route: 048
     Dates: start: 20110406
  6. HEPARIN SODIUM [Suspect]
     Indication: ISCHAEMIC HEART DISEASE PROPHYLAXIS
     Route: 042
     Dates: start: 20110408, end: 20110412
  7. AZD6140 [Suspect]
     Indication: ACUTE CORONARY SYNDROME
     Route: 048
     Dates: start: 20110406
  8. EPLERENONE [Concomitant]
     Indication: CARDIAC FAILURE ACUTE
     Route: 048
     Dates: start: 20110406, end: 20110411
  9. HANP [Concomitant]
     Route: 042
     Dates: start: 20110407, end: 20110411
  10. LANSOPRAZOLE [Concomitant]
     Indication: GASTRITIS
     Route: 048
     Dates: start: 20110406, end: 20110411
  11. ZOLPIDEM [Concomitant]
     Indication: INSOMNIA
     Route: 048
     Dates: start: 20110406, end: 20110411
  12. CARVEDILOL [Concomitant]
     Indication: CARDIAC FAILURE ACUTE
     Route: 048
     Dates: start: 20110406, end: 20110411
  13. ENALAPRIL MALEATE [Concomitant]
     Indication: HYPERTENSION
     Route: 048
     Dates: start: 20110406, end: 20110411

REACTIONS (2)
  - LOWER GASTROINTESTINAL HAEMORRHAGE [None]
  - VENTRICULAR FIBRILLATION [None]
